FAERS Safety Report 9995488 (Version 1)
Quarter: 2014Q1

REPORT INFORMATION
  Report Type: Spontaneous
  Country: US (occurrence: None)
  Receive Date: 20140218
  Receipt Date: 20140218
  Transmission Date: 20141002
  Serious: Yes (Other)
  Sender: FDA-Public Use
  Company Number: 1000051275

PATIENT
  Age: 63 Year
  Sex: Female

DRUGS (2)
  1. VIIBRYD [Suspect]
     Indication: DEPRESSION
     Dosage: 10MG (10MG, 1 IN 1D ORAL
     Route: 048
     Dates: start: 2012
  2. WELLBUTRIN (BUPROPION HYDROCHLORIDE) [Concomitant]

REACTIONS (1)
  - Prescribed overdose [None]
